FAERS Safety Report 5342962-4 (Version None)
Quarter: 2007Q2

REPORT INFORMATION
  Report Type: 
  Country: None (occurrence: None)
  Receive Date: 20070416
  Receipt Date: 20070216
  Transmission Date: 20071010
  Serious: No
  Sender: FDA-Public Use
  Company Number: 2007SP000533

PATIENT
  Age: 72 Year
  Sex: Male
  Weight: 113.3993 kg

DRUGS (7)
  1. LUNESTA [Suspect]
     Indication: INSOMNIA
     Dosage: 2 MG; HS; ORAL
     Route: 048
     Dates: start: 20070201
  2. VALSARTAN [Concomitant]
  3. AMARYL [Concomitant]
  4. AVANDIA [Concomitant]
  5. LEVOTHYROXINE SODIUM [Concomitant]
  6. CRESTOR [Concomitant]
  7. APIRINE [Concomitant]

REACTIONS (2)
  - DRUG INEFFECTIVE [None]
  - INSOMNIA [None]
